FAERS Safety Report 25748246 (Version 1)
Quarter: 2025Q3

REPORT INFORMATION
  Report Type: Spontaneous
  Country: CN (occurrence: CN)
  Receive Date: 20250902
  Receipt Date: 20250902
  Transmission Date: 20251020
  Serious: Yes (Other)
  Sender: ALEXION PHARMACEUTICALS
  Company Number: CN-ASTRAZENECA-202508CHN023538CN

PATIENT
  Age: 81 Year
  Sex: Male
  Weight: 66 kg

DRUGS (2)
  1. BUDESONIDE [Suspect]
     Active Substance: BUDESONIDE
     Indication: Chronic obstructive pulmonary disease
     Dosage: 1 MILLIGRAM, BID
     Dates: start: 20250808, end: 20250808
  2. PROCATEROL HYDROCHLORIDE [Suspect]
     Active Substance: PROCATEROL HYDROCHLORIDE
     Indication: Chronic obstructive pulmonary disease
     Dosage: 30 MICROGRAM, BID
     Dates: start: 20250808, end: 20250808

REACTIONS (2)
  - Palpitations [Recovering/Resolving]
  - Asphyxia [Recovering/Resolving]

NARRATIVE: CASE EVENT DATE: 20250808
